FAERS Safety Report 15308368 (Version 1)
Quarter: 2018Q3

REPORT INFORMATION
  Report Type: Spontaneous
  Country: US (occurrence: US)
  Receive Date: 20180822
  Receipt Date: 20180822
  Transmission Date: 20181010
  Serious: Yes (Other)
  Sender: FDA-Public Use
  Company Number: US-NOVOPROD-616536

PATIENT
  Age: 72 Year
  Sex: Male
  Weight: 95.24 kg

DRUGS (1)
  1. NOVOLOG [Suspect]
     Active Substance: INSULIN ASPART
     Indication: TYPE 2 DIABETES MELLITUS
     Dosage: UNK
     Route: 058
     Dates: start: 2006

REACTIONS (9)
  - Neuropathy peripheral [Not Recovered/Not Resolved]
  - Cholecystectomy [Unknown]
  - Polypectomy [Unknown]
  - Peripheral artery occlusion [Unknown]
  - Trigger finger [Unknown]
  - Carpal tunnel syndrome [Unknown]
  - Neuropathic arthropathy [Not Recovered/Not Resolved]
  - Stent placement [Unknown]
  - Lung neoplasm malignant [Recovered/Resolved]

NARRATIVE: CASE EVENT DATE: 2012
